FAERS Safety Report 21303748 (Version 1)
Quarter: 2022Q3

REPORT INFORMATION
  Report Type: Report from Study
  Country: US (occurrence: US)
  Receive Date: 20220907
  Receipt Date: 20220907
  Transmission Date: 20221027
  Serious: Yes (Life-Threatening, Hospitalization, Other)
  Sender: FDA-Public Use
  Company Number: US-CELGENE-USA-20190908409

PATIENT
  Age: 58 Year
  Sex: Female
  Weight: 90.67 kg

DRUGS (105)
  1. CYCLOPHOSPHAMIDE [Suspect]
     Active Substance: CYCLOPHOSPHAMIDE
     Indication: B-cell lymphoma
     Route: 065
     Dates: end: 20190530
  2. CYCLOPHOSPHAMIDE [Suspect]
     Active Substance: CYCLOPHOSPHAMIDE
     Route: 042
     Dates: start: 20190911, end: 20190913
  3. FLUDARABINE [Suspect]
     Active Substance: FLUDARABINE PHOSPHATE
     Indication: B-cell lymphoma
     Route: 042
     Dates: start: 20190911, end: 20190913
  4. RITUXIMAB [Suspect]
     Active Substance: RITUXIMAB
     Indication: B-cell lymphoma
     Route: 065
     Dates: end: 20190530
  5. RITUXIMAB [Suspect]
     Active Substance: RITUXIMAB
     Route: 042
     Dates: start: 20190725, end: 20190725
  6. IFOSFAMIDE [Suspect]
     Active Substance: IFOSFAMIDE
     Indication: B-cell lymphoma
     Route: 042
     Dates: start: 20190726, end: 20190726
  7. CARBOPLATIN [Suspect]
     Active Substance: CARBOPLATIN
     Indication: B-cell lymphoma
     Route: 042
     Dates: start: 20190726, end: 20190726
  8. ETOPOSIDE [Suspect]
     Active Substance: ETOPOSIDE
     Indication: B-cell lymphoma
     Route: 065
     Dates: end: 20190530
  9. ETOPOSIDE [Suspect]
     Active Substance: ETOPOSIDE
     Route: 042
     Dates: start: 20190725, end: 20190728
  10. ACYCLOVIR [Concomitant]
     Active Substance: ACYCLOVIR
     Indication: Antiviral prophylaxis
     Dosage: 800 MILLIGRAM
     Route: 048
     Dates: start: 20190202, end: 20190924
  11. ACYCLOVIR [Concomitant]
     Active Substance: ACYCLOVIR
     Indication: Encephalitis viral
     Dosage: 1650 MILLIGRAM
     Route: 042
     Dates: start: 20190924, end: 20190927
  12. ACYCLOVIR [Concomitant]
     Active Substance: ACYCLOVIR
     Dosage: 800 MILLIGRAM
     Route: 048
     Dates: start: 20190928, end: 20200224
  13. ATOVAQUONE [Concomitant]
     Active Substance: ATOVAQUONE
     Indication: Infection prophylaxis
     Dosage: 1500 MILLIGRAM
     Route: 048
     Dates: start: 20190911
  14. ENOXAPARIN SODIUM [Concomitant]
     Active Substance: ENOXAPARIN SODIUM
     Indication: Thrombosis prophylaxis
     Dosage: 40 MILLIGRAM
     Route: 058
     Dates: start: 20190911
  15. FLUTICASONE [Concomitant]
     Active Substance: FLUTICASONE
     Indication: Prophylaxis
     Dosage: 50 MICROGRAM/2 PUFFS
     Route: 045
     Dates: start: 20190213
  16. FLUTICASONE [Concomitant]
     Active Substance: FLUTICASONE
     Dosage: 1 SPRAY
     Route: 045
     Dates: start: 20190911
  17. GABAPENTIN [Concomitant]
     Active Substance: GABAPENTIN
     Indication: Back pain
     Dosage: FREQUENCY TEXT: QHS?300 MILLIGRAM
     Route: 048
     Dates: start: 20190811
  18. GABAPENTIN [Concomitant]
     Active Substance: GABAPENTIN
     Indication: Pain
     Dosage: 200 MILLIGRAM
     Route: 048
     Dates: start: 20191002, end: 20191002
  19. GABAPENTIN [Concomitant]
     Active Substance: GABAPENTIN
     Dosage: 400 MILLIGRAM
     Route: 048
     Dates: start: 20191005
  20. INSULIN NOS [Concomitant]
     Active Substance: INSULIN NOS
     Indication: Hyperglycaemia
     Dosage: START DATE: }5 YEARS?FREQUENCY TEXT: SLIDING SCALE
     Route: 058
  21. LEVETIRACETAM [Concomitant]
     Active Substance: LEVETIRACETAM
     Indication: Seizure prophylaxis
     Dosage: 500 MILLIGRAM
     Route: 048
     Dates: start: 20190911, end: 20190924
  22. LEVETIRACETAM [Concomitant]
     Active Substance: LEVETIRACETAM
     Indication: Encephalopathy
     Dosage: 2000 MILLIGRAM
     Route: 042
     Dates: start: 20190924, end: 20190925
  23. LEVETIRACETAM [Concomitant]
     Active Substance: LEVETIRACETAM
     Indication: Prophylaxis
     Dosage: 4000 MILLIGRAM
     Route: 042
     Dates: start: 20190925, end: 20190927
  24. LEVETIRACETAM [Concomitant]
     Active Substance: LEVETIRACETAM
     Dosage: 4000 MILLIGRAM
     Route: 048
     Dates: start: 20190927
  25. LEVETIRACETAM [Concomitant]
     Active Substance: LEVETIRACETAM
     Dosage: 4000 MILLIGRAM
     Route: 048
     Dates: start: 20190928, end: 20191007
  26. LEVETIRACETAM [Concomitant]
     Active Substance: LEVETIRACETAM
     Dosage: 3000 MILLIGRAM
     Route: 048
     Dates: start: 20191010, end: 20191113
  27. LEVETIRACETAM [Concomitant]
     Active Substance: LEVETIRACETAM
     Dosage: FREQUENCY TEXT: NOT PROVIDED
     Route: 065
     Dates: start: 20191125
  28. LEVETIRACETAM [Concomitant]
     Active Substance: LEVETIRACETAM
     Dosage: 3000 MILLIGRAM
     Route: 048
     Dates: start: 20200201, end: 20200224
  29. LEVETIRACETAM [Concomitant]
     Active Substance: LEVETIRACETAM
     Dosage: 3000 MILLIGRAM
     Route: 042
     Dates: start: 20200225, end: 20200228
  30. LEVETIRACETAM [Concomitant]
     Active Substance: LEVETIRACETAM
     Dosage: 3000 MILLIGRAM
     Route: 048
     Dates: start: 20200229
  31. LORAZEPAM [Concomitant]
     Active Substance: LORAZEPAM
     Indication: Nausea
     Dosage: FREQUENCY TEXT: PRN?.5 MILLIGRAM
     Route: 048
     Dates: start: 20190119
  32. LORAZEPAM [Concomitant]
     Active Substance: LORAZEPAM
     Indication: Vomiting
     Dosage: FREQUENCY TEXT: PRN?0.5-1 MILLIGRAM
     Route: 065
     Dates: start: 20190911
  33. LORAZEPAM [Concomitant]
     Active Substance: LORAZEPAM
     Indication: Insomnia
     Dosage: 2 MILLIGRAM
     Route: 042
     Dates: start: 20190924, end: 20190926
  34. LORAZEPAM [Concomitant]
     Active Substance: LORAZEPAM
     Indication: Anxiety
  35. ONDANSETRON [Concomitant]
     Active Substance: ONDANSETRON
     Indication: Nausea
     Dosage: FREQUENCY TEXT: PRN?4-8 MILLIGRAM
     Route: 042
     Dates: start: 20190119
  36. ONDANSETRON [Concomitant]
     Active Substance: ONDANSETRON
     Indication: Vomiting
     Dosage: 8 MILLIGRAM
     Route: 042
     Dates: start: 20190911, end: 20190913
  37. ONDANSETRON [Concomitant]
     Active Substance: ONDANSETRON
     Indication: Premedication
  38. OXYCODONE [Concomitant]
     Active Substance: OXYCODONE
     Indication: Pain
     Dosage: FREQUENCY TEXT: PRN?5-10 MILLIGRAM
     Route: 048
     Dates: start: 20190120
  39. OXYCODONE [Concomitant]
     Active Substance: OXYCODONE
     Dosage: FREQUENCY TEXT: PRN?5-10 MILLIGRAM
     Route: 048
     Dates: start: 20190922
  40. PANTOPRAZOLE [Concomitant]
     Active Substance: PANTOPRAZOLE
     Indication: Product used for unknown indication
     Dosage: 80 MILLIGRAM
     Route: 048
     Dates: start: 20190911, end: 20190924
  41. PANTOPRAZOLE [Concomitant]
     Active Substance: PANTOPRAZOLE
     Dosage: 40 MILLIGRAM
     Route: 042
     Dates: start: 20190925, end: 20190927
  42. PANTOPRAZOLE [Concomitant]
     Active Substance: PANTOPRAZOLE
     Dosage: 80 MILLIGRAM
     Route: 048
     Dates: start: 20191001
  43. SERTRALINE [Concomitant]
     Active Substance: SERTRALINE HYDROCHLORIDE
     Indication: Depression
     Dosage: START DATE: } 5 YEARS?12.5 MILLIGRAM
     Route: 048
  44. SERTRALINE [Concomitant]
     Active Substance: SERTRALINE HYDROCHLORIDE
     Indication: Anxiety
  45. PROCHLORPERAZINE [Concomitant]
     Active Substance: PROCHLORPERAZINE
     Indication: Nausea
     Dosage: FREQUENCY TEXT: PRN?40 MILLIGRAM
     Route: 042
     Dates: start: 20190210
  46. PROCHLORPERAZINE [Concomitant]
     Active Substance: PROCHLORPERAZINE
     Indication: Vomiting
     Dosage: FREQUENCY TEXT: PRN?5-10 MILLIGRAM
     Route: 048
     Dates: start: 20190914
  47. FOSAPREPITANT [Concomitant]
     Active Substance: FOSAPREPITANT
     Indication: Antiemetic supportive care
     Dosage: FREQUENCY TEXT: ONCE?150 MILLIGRAM
     Route: 042
     Dates: start: 20190918, end: 20190918
  48. ARTIFICIAL TEARS [Concomitant]
     Active Substance: GLYCERIN\HYPROMELLOSES\POLYETHYLENE GLYCOL 400
     Indication: Dry eye
     Dosage: 1-2 DROPS BOTH EYES
     Route: 047
     Dates: start: 20190920
  49. CEFEPIME [Concomitant]
     Active Substance: CEFEPIME HYDROCHLORIDE
     Indication: Febrile neutropenia
     Dosage: 6 GRAM
     Route: 042
     Dates: start: 20190921, end: 20190925
  50. CEFEPIME [Concomitant]
     Active Substance: CEFEPIME HYDROCHLORIDE
     Indication: Infection prophylaxis
     Dosage: 6 GRAM
     Route: 042
     Dates: start: 20191006, end: 20191006
  51. CEFEPIME [Concomitant]
     Active Substance: CEFEPIME HYDROCHLORIDE
     Indication: Infection prophylaxis
     Dosage: 6 GRAM
     Route: 042
     Dates: start: 20191006
  52. CEFEPIME [Concomitant]
     Active Substance: CEFEPIME HYDROCHLORIDE
     Dosage: 6 GRAM
     Route: 042
     Dates: start: 20200228, end: 20200229
  53. DEXAMETHASONE [Concomitant]
     Active Substance: DEXAMETHASONE
     Indication: Cytokine release syndrome
     Dosage: 30 MILLIGRAM
     Route: 042
     Dates: start: 20190923, end: 20190924
  54. DEXAMETHASONE [Concomitant]
     Active Substance: DEXAMETHASONE
     Indication: Neurotoxicity
     Dosage: FREQUENCY TEXT: 2 DOSES?20 MILLIGRAM
     Route: 042
     Dates: start: 20190922, end: 20190923
  55. DEXAMETHASONE [Concomitant]
     Active Substance: DEXAMETHASONE
     Indication: Encephalopathy
     Dosage: FREQUENCY TEXT: ONCE?10 MILLIGRAM
     Route: 042
     Dates: start: 20190922, end: 20190922
  56. DEXAMETHASONE [Concomitant]
     Active Substance: DEXAMETHASONE
     Indication: Prophylaxis
     Dosage: FREQUENCY TEXT: ONCE?20 MILLIGRAM
     Route: 042
     Dates: start: 20190924, end: 20190924
  57. DEXAMETHASONE [Concomitant]
     Active Substance: DEXAMETHASONE
     Dosage: 40 MILLIGRAM
     Route: 042
     Dates: start: 20190924, end: 20190929
  58. DEXAMETHASONE [Concomitant]
     Active Substance: DEXAMETHASONE
     Dosage: 80 MILLIGRAM
     Route: 042
     Dates: start: 20190925, end: 20190927
  59. DEXAMETHASONE [Concomitant]
     Active Substance: DEXAMETHASONE
     Dosage: 20 MILLIGRAM
     Route: 042
     Dates: start: 20190930, end: 20190930
  60. DEXAMETHASONE [Concomitant]
     Active Substance: DEXAMETHASONE
     Dosage: FREQUENCY TEXT: ONCE?10 MILLIGRAM
     Route: 042
     Dates: start: 20191001, end: 20191001
  61. DEXAMETHASONE [Concomitant]
     Active Substance: DEXAMETHASONE
     Dosage: FREQUENCY TEXT: ONCE?5 MILLIGRAM
     Route: 042
     Dates: start: 20191002, end: 20191002
  62. DEXAMETHASONE [Concomitant]
     Active Substance: DEXAMETHASONE
     Dosage: 30 MILLIGRAM
     Route: 042
     Dates: start: 20191006, end: 20191007
  63. DEXAMETHASONE [Concomitant]
     Active Substance: DEXAMETHASONE
     Dosage: 60 MILLIGRAM
     Route: 042
     Dates: start: 20191007, end: 20191008
  64. DEXAMETHASONE [Concomitant]
     Active Substance: DEXAMETHASONE
     Dosage: 30 MILLIGRAM
     Route: 042
     Dates: start: 20191008, end: 20191011
  65. DEXAMETHASONE [Concomitant]
     Active Substance: DEXAMETHASONE
     Dosage: 20 MILLIGRAM
     Route: 042
     Dates: start: 20191011, end: 20191012
  66. DEXAMETHASONE [Concomitant]
     Active Substance: DEXAMETHASONE
     Dosage: 12 MILLIGRAM (DEXAMETHASONE TAPER)
     Route: 042
     Dates: start: 20191012, end: 20191014
  67. DEXAMETHASONE [Concomitant]
     Active Substance: DEXAMETHASONE
     Dosage: 8 MILLIGRAM
     Route: 042
     Dates: start: 20191015, end: 20191016
  68. DEXAMETHASONE [Concomitant]
     Active Substance: DEXAMETHASONE
     Dosage: 4 MILLIGRAM
     Route: 042
     Dates: start: 20191017, end: 20191017
  69. DEXAMETHASONE [Concomitant]
     Active Substance: DEXAMETHASONE
     Dosage: 2 MILLIGRAM
     Route: 042
     Dates: start: 20191018, end: 20191019
  70. DEXAMETHASONE [Concomitant]
     Active Substance: DEXAMETHASONE
     Dosage: FREQUENCY TEXT: ONCE?IV/PO/NG
     Route: 065
     Dates: start: 20191022, end: 20191108
  71. DEXAMETHASONE [Concomitant]
     Active Substance: DEXAMETHASONE
     Dosage: 2 MILLIGRAM
     Route: 048
     Dates: start: 20191125
  72. DEXAMETHASONE [Concomitant]
     Active Substance: DEXAMETHASONE
     Dosage: 1 MILLIGRAM
     Route: 048
     Dates: start: 20191225, end: 20200224
  73. DEXAMETHASONE [Concomitant]
     Active Substance: DEXAMETHASONE
     Dosage: FREQUENCY TEXT: ONCE
     Route: 065
     Dates: start: 20200225, end: 20200225
  74. DEXAMETHASONE [Concomitant]
     Active Substance: DEXAMETHASONE
     Dosage: 4 MILLIGRAM
     Route: 042
     Dates: start: 20200225, end: 20200302
  75. DEXAMETHASONE [Concomitant]
     Active Substance: DEXAMETHASONE
     Dosage: 4 MILLIGRAM
     Route: 048
     Dates: start: 20200302
  76. MILK OF MAGNESIA [Concomitant]
     Active Substance: MAGNESIUM HYDROXIDE
     Indication: Constipation
     Dosage: FREQUENCY TEXT: PRN?120 MILLILITER
     Route: 048
     Dates: start: 20190129
  77. MORPHINE SULFATE [Concomitant]
     Active Substance: MORPHINE SULFATE
     Indication: Pain
     Dosage: FREQUENCY TEXT: ONCE?1 MILLIGRAM
     Route: 042
     Dates: start: 20190922, end: 20190922
  78. MORPHINE SULFATE [Concomitant]
     Active Substance: MORPHINE SULFATE
     Dosage: FREQUENCY TEXT: PRN?6 MILLIGRAM
     Route: 042
     Dates: start: 20190918
  79. TOCILIZUMAB [Concomitant]
     Active Substance: TOCILIZUMAB
     Indication: Cytokine release syndrome
     Dosage: FREQUENCY TEXT: ONCE?720 MILLIGRAM
     Route: 042
     Dates: start: 20190922, end: 20190922
  80. VANCOMYCIN [Concomitant]
     Active Substance: VANCOMYCIN
     Indication: Febrile neutropenia
     Dosage: 3000 MILLIGRAM
     Route: 042
     Dates: start: 20190922, end: 20190923
  81. VANCOMYCIN [Concomitant]
     Active Substance: VANCOMYCIN
     Indication: Osteomyelitis
     Dosage: 3000 MILLIGRAM
     Route: 042
     Dates: start: 20190923
  82. VANCOMYCIN [Concomitant]
     Active Substance: VANCOMYCIN
     Indication: Skin bacterial infection
     Dosage: 1500 MILLIGRAM
     Route: 042
     Dates: start: 20190925, end: 20190927
  83. VANCOMYCIN [Concomitant]
     Active Substance: VANCOMYCIN
     Route: 065
  84. VANCOMYCIN [Concomitant]
     Active Substance: VANCOMYCIN
     Dosage: 1500 MILLIGRAM
     Route: 042
     Dates: start: 20200209
  85. VANCOMYCIN [Concomitant]
     Active Substance: VANCOMYCIN
     Dosage: 1250 MILLIGRAM
     Route: 042
     Dates: start: 20200216, end: 20200222
  86. VANCOMYCIN [Concomitant]
     Active Substance: VANCOMYCIN
     Dosage: 2000 MILLIGRAM
     Route: 042
     Dates: start: 20200226, end: 20200229
  87. ACETAMINOPHEN [Concomitant]
     Active Substance: ACETAMINOPHEN
     Indication: Pain
     Dosage: FREQUENCY TEXT: ONCE?1000 MILLIGRAM
     Route: 042
     Dates: start: 20190924, end: 20190924
  88. ACETAMINOPHEN [Concomitant]
     Active Substance: ACETAMINOPHEN
     Indication: Premedication
     Dosage: FREQUENCY TEXT: ONCE?1000 MILLIGRAM
     Route: 042
     Dates: start: 20191006, end: 20191006
  89. ACETAMINOPHEN [Concomitant]
     Active Substance: ACETAMINOPHEN
     Dosage: FREQUENCY TEXT: ONCE?650 MILLIGRAM
     Route: 048
     Dates: start: 20190916, end: 20190916
  90. CALCIUM CARBONATE [Concomitant]
     Active Substance: CALCIUM CARBONATE
     Indication: Dyspepsia
     Dosage: 2000 MILLIGRAM
     Route: 048
     Dates: start: 20190928
  91. CYCLOBENZAPRINE [Concomitant]
     Active Substance: CYCLOBENZAPRINE
     Indication: Muscle spasms
     Dosage: 30 MILLIGRAM
     Route: 048
     Dates: start: 20191002
  92. DOCUSATE SODIUM [Concomitant]
     Active Substance: DOCUSATE SODIUM
     Indication: Constipation
     Dosage: 200 MILLIGRAM
     Route: 048
     Dates: start: 20190918, end: 20190927
  93. FILGRASTIM [Concomitant]
     Active Substance: FILGRASTIM
     Indication: Product used for unknown indication
     Dosage: 480 MICROGRAM
     Route: 058
     Dates: start: 20190922, end: 20190922
  94. FILGRASTIM [Concomitant]
     Active Substance: FILGRASTIM
     Dosage: 480 MICROGRAM
     Route: 058
     Dates: start: 20191006
  95. HYDROMORPHONE [Concomitant]
     Active Substance: HYDROMORPHONE
     Indication: Pain
     Dosage: 0.5-1MG EVERY 3 HOURS AS NEEDED
     Route: 042
     Dates: start: 20191005
  96. KETOROLAC [Concomitant]
     Active Substance: KETOROLAC TROMETHAMINE
     Indication: Pain
     Dosage: FREQUENCY TEXT: ONCE?15 MILLIGRAM
     Route: 042
     Dates: start: 20191005, end: 20191005
  97. MEROPENEM [Concomitant]
     Active Substance: MEROPENEM
     Indication: Infection prophylaxis
     Dosage: 6000 MILLIGRAM
     Route: 042
     Dates: start: 20190925, end: 20190927
  98. MEROPENEM [Concomitant]
     Active Substance: MEROPENEM
     Indication: Infection prophylaxis
     Dosage: 6000 MILLIGRAM
     Route: 042
     Dates: start: 20200224, end: 20200228
  99. MEROPENEM [Concomitant]
     Active Substance: MEROPENEM
     Indication: Infection
  100. METRONIDAZOLE [Concomitant]
     Active Substance: METRONIDAZOLE
     Indication: Abdominal infection
     Dosage: 1500 MILLIGRAM
     Route: 042
     Dates: start: 20191006
  101. NYSTATIN [Concomitant]
     Active Substance: NYSTATIN
     Indication: Oropharyngeal candidiasis
     Dosage: 20 MILLILITER
     Route: 048
     Dates: start: 20190928
  102. RANITIDINE [Concomitant]
     Active Substance: RANITIDINE
     Indication: Dyspepsia
     Dosage: 75 MILLIGRAM
     Route: 048
     Dates: start: 20190929
  103. SENNA [Concomitant]
     Active Substance: SENNA LEAF\SENNOSIDES\SENNOSIDES A AND B
     Indication: Constipation
     Dosage: 17.2 MILLIGRAM
     Route: 048
     Dates: start: 20190924, end: 20190927
  104. SENNA [Concomitant]
     Active Substance: SENNA LEAF\SENNOSIDES\SENNOSIDES A AND B
     Dosage: 17.2 MILLIGRAM
     Route: 048
     Dates: start: 20190918
  105. DIPHENHYDRAMINE [Concomitant]
     Active Substance: DIPHENHYDRAMINE
     Indication: Premedication
     Dosage: FREQUENCY TEXT: ONCE?25 MILLIGRAM
     Route: 048
     Dates: start: 20190916, end: 20190916

REACTIONS (4)
  - Seizure [Recovered/Resolved]
  - Bacteraemia [Recovered/Resolved]
  - Encephalopathy [Recovered/Resolved]
  - Encephalopathy [Recovered/Resolved]

NARRATIVE: CASE EVENT DATE: 20190924
